FAERS Safety Report 6420273-3 (Version None)
Quarter: 2009Q4

REPORT INFORMATION
  Report Type: 
  Country: None (occurrence: None)
  Receive Date: 20091029
  Receipt Date: 20091020
  Transmission Date: 20100525
  Serious: No
  Sender: FDA-Public Use
  Company Number: US-B.I. PHARMACEUTICALS,INC./RIDGEFIELD-2009-BP-11228BP

PATIENT
  Sex: Female

DRUGS (6)
  1. CATAPRES-TTS-1 [Suspect]
     Indication: BIPOLAR II DISORDER
     Dosage: 0.2 MG
     Route: 061
     Dates: start: 20090801
  2. CATAPRES-TTS-1 [Suspect]
     Dosage: 0.1 MG
     Route: 061
     Dates: start: 20090801
  3. ARIMIDEX [Concomitant]
  4. LEVOTHYROXINE SODIUM [Concomitant]
  5. ADDERALL 10 [Concomitant]
  6. LAMICTAL [Concomitant]

REACTIONS (3)
  - AGITATION [None]
  - ANGER [None]
  - MANIA [None]
